FAERS Safety Report 4771476-5 (Version None)
Quarter: 2005Q3

REPORT INFORMATION
  Report Type: 
  Country: None (occurrence: None)
  Receive Date: 20050913
  Receipt Date: 20050913
  Transmission Date: 20060218
  Serious: Yes (Other)
  Sender: FDA-Public Use
  Company Number: None

PATIENT
  Age: 33 Year
  Sex: Male
  Weight: 104.3273 kg

DRUGS (1)
  1. CLOZAPINE [Suspect]
     Indication: SCHIZOPHRENIA
     Dosage: 25 AND 50 BID PO
     Route: 048
     Dates: start: 20050720, end: 20050831

REACTIONS (2)
  - BONE MARROW DEPRESSION [None]
  - PHARMACEUTICAL PRODUCT COMPLAINT [None]
